FAERS Safety Report 6056869-0 (Version None)
Quarter: 2009Q1

REPORT INFORMATION
  Report Type: 
  Country: None (occurrence: None)
  Receive Date: 20090129
  Receipt Date: 20090123
  Transmission Date: 20090719
  Serious: Yes (Other)
  Sender: FDA-Public Use
  Company Number: A0762536A

PATIENT
  Age: 38 Year
  Sex: Female

DRUGS (5)
  1. ADVAIR DISKUS 100/50 [Suspect]
     Indication: ASTHMA
     Route: 055
     Dates: start: 20080701, end: 20081001
  2. THYROXINE [Concomitant]
  3. ZYRTEC [Concomitant]
  4. PROVENTIL [Concomitant]
  5. VERAMYST [Concomitant]

REACTIONS (4)
  - ASTHMA [None]
  - BRONCHITIS [None]
  - COUGH [None]
  - MUSCULOSKELETAL CHEST PAIN [None]
